FAERS Safety Report 8523730-9 (Version None)
Quarter: 2012Q3

REPORT INFORMATION
  Report Type: 
  Country: None (occurrence: None)
  Receive Date: 20120720
  Receipt Date: 20120713
  Transmission Date: 20120928
  Serious: Yes (Other)
  Sender: FDA-Public Use
  Company Number: US-BAYER-2012-071680

PATIENT
  Age: 2 Year

DRUGS (1)
  1. ASPIRIN [Suspect]
     Dosage: 18 TABLETS
     Route: 048

REACTIONS (1)
  - LIVER FUNCTION TEST ABNORMAL [None]
